FAERS Safety Report 9798128 (Version 2)
Quarter: 2014Q1

REPORT INFORMATION
  Report Type: Spontaneous
  Country: US (occurrence: None)
  Receive Date: 20140102
  Receipt Date: 20140312
  Transmission Date: 20141002
  Serious: Yes (Death)
  Sender: FDA-Public Use
  Company Number: UTC-042307

PATIENT
  Age: 66 Year
  Sex: Female
  Weight: 68.18 kg

DRUGS (2)
  1. TYVASO [Suspect]
     Indication: SARCOIDOSIS
     Dosage: 18 TO 54 MCGS ( 3 IN 1 D), INHALATION
     Route: 055
     Dates: start: 20130215, end: 201311
  2. LETAIRIS (AMBRISENTAN) (TABLETS) [Concomitant]

REACTIONS (2)
  - Death [None]
  - Cardiac failure [None]
